FAERS Safety Report 17527424 (Version 1)
Quarter: 2020Q1

REPORT INFORMATION
  Report Type: Spontaneous
  Country: US (occurrence: US)
  Receive Date: 20200304
  Receipt Date: 20200304
  Transmission Date: 20200409
  Serious: No
  Sender: FDA-Public Use
  Company Number: None

PATIENT
  Age: 71 Year
  Sex: Female

DRUGS (2)
  1. FULVESTRANT. [Concomitant]
     Active Substance: FULVESTRANT
  2. XGEVA [Suspect]
     Active Substance: DENOSUMAB
     Route: 058
     Dates: start: 201807

REACTIONS (2)
  - Pain [None]
  - Gallbladder disorder [None]

NARRATIVE: CASE EVENT DATE: 20200304
